FAERS Safety Report 5146070-7 (Version None)
Quarter: 2006Q4

REPORT INFORMATION
  Report Type: 
  Country: None (occurrence: None)
  Receive Date: 20061102
  Receipt Date: 20061020
  Transmission Date: 20070319
  Serious: Yes (Hospitalization, Other)
  Sender: FDA-Public Use
  Company Number: HQWYE385420OCT06

PATIENT
  Age: 42 Year
  Sex: Female

DRUGS (5)
  1. PANTOPRAZOLE SODIUM [Suspect]
     Indication: DYSPEPSIA
     Route: 048
     Dates: start: 20060515, end: 20060529
  2. ANAFRANIL [Suspect]
     Route: 048
     Dates: end: 20060529
  3. GAVISCON [Suspect]
     Dates: end: 20060529
  4. IMOVANE (ZOPICLONE, ) [Suspect]
     Route: 048
     Dates: end: 20060529
  5. SPASFON (PHLOROGLUCINOL/TRIMETHYLPHLOROGLUCINOL, ) [Suspect]
     Route: 048

REACTIONS (4)
  - ANTINUCLEAR ANTIBODY POSITIVE [None]
  - CHOLELITHIASIS [None]
  - CHOLESTASIS [None]
  - CYTOLYTIC HEPATITIS [None]
